APPROVED DRUG PRODUCT: EXOSURF NEONATAL
Active Ingredient: CETYL ALCOHOL; COLFOSCERIL PALMITATE; TYLOXAPOL
Strength: 12MG/VIAL;108MG/VIAL;8MG/VIAL
Dosage Form/Route: FOR SUSPENSION;INTRATRACHEAL
Application: N020044 | Product #001
Applicant: GLAXOSMITHKLINE
Approved: Aug 2, 1990 | RLD: No | RS: No | Type: DISCN